FAERS Safety Report 14233836 (Version 2)
Quarter: 2018Q1

REPORT INFORMATION
  Report Type: Report from Study
  Country: FR (occurrence: FR)
  Receive Date: 20171128
  Receipt Date: 20180119
  Transmission Date: 20180508
  Serious: Yes (Hospitalization)
  Sender: FDA-Public Use
  Company Number: FR-NOVOPROD-573457

PATIENT
  Age: 26 Year
  Sex: Female
  Weight: 63.3 kg

DRUGS (12)
  1. LARGACTIL                          /00011901/ [Concomitant]
     Active Substance: CHLORPROMAZINE
     Indication: VOMITING
     Dosage: UNK
     Route: 065
     Dates: start: 20171109
  2. VITAMINE C [Concomitant]
     Active Substance: ASCORBIC ACID
     Indication: MULTI-VITAMIN DEFICIENCY
     Dosage: UNK
     Route: 065
     Dates: start: 20171008
  3. NOVORAPID [Suspect]
     Active Substance: INSULIN ASPART
     Indication: TYPE 1 DIABETES MELLITUS
     Dosage: 24 IU, QD
     Route: 058
     Dates: start: 201710
  4. ABASAGLAR [Suspect]
     Active Substance: INSULIN GLARGINE
     Indication: TYPE 1 DIABETES MELLITUS
     Dosage: 28 IU, QD
     Route: 058
     Dates: start: 201710
  5. TARDYFERON [Concomitant]
     Active Substance: FERROUS SULFATE
     Indication: ANAEMIA
     Dosage: UNK
     Route: 065
     Dates: start: 20171008
  6. GAVISCON                           /00237601/ [Concomitant]
     Active Substance: ALUMINUM HYDROXIDE\MAGNESIUM CARBONATE
     Indication: DYSPEPSIA
     Dosage: UNK
     Route: 065
     Dates: start: 20171111
  7. VITAMIN B6 [Concomitant]
     Active Substance: PYRIDOXINE HYDROCHLORIDE
     Indication: MULTI-VITAMIN DEFICIENCY
     Dosage: UNK
     Route: 065
     Dates: start: 20171008
  8. DONORMYL                           /00334102/ [Concomitant]
     Active Substance: DOXYLAMINE SUCCINATE
     Indication: VOMITING
     Dosage: UNK
     Route: 065
     Dates: start: 20171008
  9. SPECIAFOLDINE [Concomitant]
     Active Substance: FOLIC ACID
     Indication: PROPHYLAXIS
     Dosage: UNK
     Route: 065
     Dates: start: 20171023
  10. UVEDOSE [Concomitant]
     Active Substance: CHOLECALCIFEROL
     Indication: MULTI-VITAMIN DEFICIENCY
     Dosage: UNK
     Route: 065
     Dates: start: 20171020, end: 20171110
  11. VITAMINE B1 [Concomitant]
     Active Substance: THIAMINE HYDROCHLORIDE
     Indication: MULTI-VITAMIN DEFICIENCY
     Dosage: UNK
     Route: 065
     Dates: start: 20171008
  12. EUPANTOL [Concomitant]
     Active Substance: PANTOPRAZOLE SODIUM
     Indication: VOMITING
     Dosage: UNK
     Route: 065
     Dates: start: 20171109

REACTIONS (3)
  - Hypoglycaemia [Recovered/Resolved]
  - Exposure during pregnancy [Unknown]
  - Ketosis [Recovered/Resolved]

NARRATIVE: CASE EVENT DATE: 20170814
